FAERS Safety Report 20514395 (Version 1)
Quarter: 2022Q1

REPORT INFORMATION
  Report Type: Spontaneous
  Country: US (occurrence: None)
  Receive Date: 20220224
  Receipt Date: 20220224
  Transmission Date: 20220423
  Serious: Yes (Disabling)
  Sender: FDA-Public Use
  Company Number: None

PATIENT
  Age: 91 Year
  Sex: Female
  Weight: 84.82 kg

DRUGS (13)
  1. AMLODIPINE BESYLATE [Suspect]
     Active Substance: AMLODIPINE BESYLATE
     Indication: Blood pressure measurement
     Dosage: OTHER QUANTITY : ONE TABLET EACH DAY;?OTHER FREQUENCY : IN AM;?8 DOSES  ?
     Route: 048
     Dates: start: 20211222, end: 20211230
  2. LOSARTAN [Concomitant]
     Active Substance: LOSARTAN
  3. COREG [Concomitant]
     Active Substance: CARVEDILOL
  4. Sporonolactone [Concomitant]
  5. TORSEMIDE [Concomitant]
     Active Substance: TORSEMIDE
  6. ASPIRIN [Concomitant]
     Active Substance: ASPIRIN
  7. ALEVE [Concomitant]
     Active Substance: NAPROXEN SODIUM
  8. MECLIZINE [Concomitant]
     Active Substance: MECLIZINE HYDROCHLORIDE
  9. FOLIC ACID [Concomitant]
     Active Substance: FOLIC ACID
  10. LIDOCAINE [Concomitant]
  11. TYLENOL [Concomitant]
     Active Substance: ACETAMINOPHEN
  12. VITAMIN D NOS [Concomitant]
     Active Substance: VITAMIN D NOS
  13. COLACE [Concomitant]
     Active Substance: DOCUSATE SODIUM

REACTIONS (6)
  - Joint swelling [None]
  - Peripheral swelling [None]
  - Peripheral swelling [None]
  - Pain in extremity [None]
  - Gait disturbance [None]
  - Mobility decreased [None]

NARRATIVE: CASE EVENT DATE: 20211222
